FAERS Safety Report 6162829-1 (Version None)
Quarter: 2009Q2

REPORT INFORMATION
  Report Type: 
  Country: None (occurrence: None)
  Receive Date: 20090421
  Receipt Date: 20081204
  Transmission Date: 20091009
  Serious: No
  Sender: FDA-Public Use
  Company Number: US-ASTRAZENECA-2008UW17569

PATIENT
  Age: 63 Year
  Sex: Male
  Weight: 81.6 kg

DRUGS (17)
  1. TOPROL-XL [Suspect]
     Dosage: 100 MG
     Route: 048
     Dates: start: 20080804
  2. RHYTHMOL [Concomitant]
  3. WARFARIN SODIUM [Concomitant]
  4. ASPIRIN [Concomitant]
  5. ZETIA [Concomitant]
  6. INDAPAMIDE [Concomitant]
  7. MIRAPEX [Concomitant]
  8. SULFASALAZINE [Concomitant]
  9. FOLIC ACID [Concomitant]
  10. SIMVASTATIN [Concomitant]
  11. NTG PRN [Concomitant]
  12. MESALAMINE ENEMA PRN [Concomitant]
  13. ALPRAZOLAM [Concomitant]
  14. MULTI-VITAMIN [Concomitant]
  15. GLUCOSAMINE [Concomitant]
  16. SAL PALMETTO [Concomitant]
  17. FISH OIL [Concomitant]

REACTIONS (2)
  - DRUG DISPENSING ERROR [None]
  - FEELING ABNORMAL [None]
